FAERS Safety Report 6140094-9 (Version None)
Quarter: 2009Q1

REPORT INFORMATION
  Report Type: 
  Country: None (occurrence: None)
  Receive Date: 20090324
  Receipt Date: 20090316
  Transmission Date: 20090719
  Serious: Yes (Other)
  Sender: FDA-Public Use
  Company Number: 2009S1004482

PATIENT
  Age: 52 Year
  Sex: Female

DRUGS (3)
  1. DIABEX XR (METFORMIN) [Suspect]
     Indication: TYPE 2 DIABETES MELLITUS
     Dosage: 500 MG; AT BEDTIME ORAL, 500 MG; MODIFIED-RELEASE TABLET; ORAL; AT BEDTIME
     Route: 048
     Dates: start: 20080401, end: 20080601
  2. LEVOTHYROXINE SODIUM [Concomitant]
  3. CRESTOR [Concomitant]

REACTIONS (4)
  - BLOOD PRESSURE INCREASED [None]
  - PALPITATIONS [None]
  - PANIC ATTACK [None]
  - TREATMENT NONCOMPLIANCE [None]
